FAERS Safety Report 10086216 (Version 1)
Quarter: 2014Q2

REPORT INFORMATION
  Report Type: Spontaneous
  Country: FR (occurrence: SE)
  Receive Date: 20140418
  Receipt Date: 20140418
  Transmission Date: 20141212
  Serious: Yes (Hospitalization)
  Sender: FDA-Public Use
  Company Number: SE-FRI-1000066369

PATIENT
  Age: 55 Year
  Sex: Female

DRUGS (12)
  1. ACAMPROSATE [Suspect]
     Indication: ALCOHOLISM
     Dosage: 1998 MG
     Dates: start: 20130912, end: 20131213
  2. NALTREXONE [Suspect]
     Dates: start: 20130912, end: 20131213
  3. ASPIRIN [Suspect]
  4. DICLOFENAC [Suspect]
  5. IDEOS [Concomitant]
     Dosage: 500MG/ 400 IE
     Dates: end: 20131213
  6. BEHEPAN [Concomitant]
  7. FOLACIN [Concomitant]
  8. HYDROCHLOROTHIAZIDE W/LOSARTAN [Concomitant]
     Dosage: 21.5/ 50 MG
  9. PROGYNON [Concomitant]
  10. STILNOCT [Concomitant]
  11. HEMINEVRIN [Concomitant]
  12. ANTABUS [Concomitant]
     Dosage: SINGLE DOSE

REACTIONS (8)
  - Hepatitis toxic [Recovered/Resolved]
  - Blood bilirubin increased [Recovered/Resolved]
  - Liver function test abnormal [Recovered/Resolved]
  - Gastritis [Not Recovered/Not Resolved]
  - Yellow skin [Unknown]
  - Headache [Not Recovered/Not Resolved]
  - Nausea [Not Recovered/Not Resolved]
  - Vomiting [Unknown]
